FAERS Safety Report 11170203 (Version 2)
Quarter: 2015Q3

REPORT INFORMATION
  Report Type: Spontaneous
  Country: US (occurrence: US)
  Receive Date: 20150608
  Receipt Date: 20150820
  Transmission Date: 20151125
  Serious: Yes (Hospitalization, Other)
  Sender: FDA-Public Use
  Company Number: US-PFIZER INC-2015185103

PATIENT

DRUGS (6)
  1. IBRANCE [Suspect]
     Active Substance: PALBOCICLIB
     Dosage: 100 MG, DAILY (X 21 DAYS)
     Route: 048
     Dates: start: 20150325, end: 20150414
  2. LETROZOLE. [Concomitant]
     Active Substance: LETROZOLE
     Indication: BREAST DISORDER
  3. IBRANCE [Suspect]
     Active Substance: PALBOCICLIB
     Indication: BREAST CANCER METASTATIC
     Dosage: 25MG ONCE DAILY CYCLIC 21 DAYS, OFF 7 DAYS
     Route: 048
     Dates: start: 20150220, end: 20150318
  4. IBRANCE [Suspect]
     Active Substance: PALBOCICLIB
     Dosage: 75 MG, UNK
     Route: 048
     Dates: start: 20150424, end: 20150620
  5. FASLODEX [Concomitant]
     Active Substance: FULVESTRANT
     Indication: BREAST CANCER METASTATIC
     Dosage: 500 MG, DAILY (ON DAY 1, 15 AND 29; THERE AFTER AND 28 DAYS)
     Dates: start: 20150220, end: 20150713
  6. LETROZOLE. [Concomitant]
     Active Substance: LETROZOLE
     Indication: HORMONE THERAPY
     Dosage: 2.5 MG, DAILY
     Route: 048
     Dates: start: 20150220, end: 20150713

REACTIONS (9)
  - Petechiae [Unknown]
  - Disease progression [Unknown]
  - Pyrexia [Recovered/Resolved]
  - Chills [Unknown]
  - Contusion [Unknown]
  - Platelet count decreased [Recovered/Resolved]
  - Breast cancer metastatic [Unknown]
  - Neutrophil count decreased [Recovered/Resolved]
  - Sepsis [Unknown]

NARRATIVE: CASE EVENT DATE: 2015
